FAERS Safety Report 7327072-9 (Version None)
Quarter: 2011Q1

REPORT INFORMATION
  Report Type: 
  Country: None (occurrence: None)
  Receive Date: 20110218
  Receipt Date: 20110203
  Transmission Date: 20110831
  Serious: Yes (Other)
  Sender: FDA-Public Use
  Company Number: 2011S1000056

PATIENT
  Age: 6 Month
  Sex: Male

DRUGS (1)
  1. INOMAX [Suspect]
     Indication: PERSISTENT FOETAL CIRCULATION
     Dosage: 20 PPM; CONT; INH
     Route: 055
     Dates: start: 20100101

REACTIONS (2)
  - DEVICE FAILURE [None]
  - OXYGEN SATURATION DECREASED [None]
